FAERS Safety Report 12346191 (Version 1)
Quarter: 2016Q2

REPORT INFORMATION
  Report Type: Spontaneous
  Country: US (occurrence: None)
  Receive Date: 20160506
  Receipt Date: 20160506
  Transmission Date: 20160815
  Serious: No
  Sender: FDA-Public Use
  Company Number: None

PATIENT
  Sex: Female

DRUGS (1)
  1. NITROUS OXIDE. [Suspect]
     Active Substance: NITROUS OXIDE

REACTIONS (9)
  - Dizziness [None]
  - Feeling jittery [None]
  - Intraocular pressure increased [None]
  - Blood glucose fluctuation [None]
  - Retinal tear [None]
  - Blister [None]
  - Foreign body in eye [None]
  - Eye contusion [None]
  - Pain [None]
